FAERS Safety Report 9656850 (Version 2)
Quarter: 2013Q4

REPORT INFORMATION
  Report Type: Spontaneous
  Country: FR (occurrence: FR)
  Receive Date: 20131030
  Receipt Date: 20131030
  Transmission Date: 20140711
  Serious: Yes (Other)
  Sender: FDA-Public Use
  Company Number: FR-PFIZER INC-2005058588

PATIENT
  Age: 38 Year
  Sex: Female
  Weight: 78 kg

DRUGS (6)
  1. GENOTONORM [Suspect]
     Indication: HYPOPITUITARISM
     Dosage: 0.8 MG, DAILY
     Dates: start: 19981012, end: 19990430
  2. GENOTONORM [Suspect]
     Dosage: 0.8 MG, DAILY
     Route: 058
     Dates: start: 20000405, end: 20030704
  3. AVLOCARDYL [Concomitant]
     Indication: SINUS TACHYCARDIA
     Dosage: 20 MG, 3X/DAY
     Route: 048
     Dates: start: 19981217
  4. HYDROCORTISONE [Concomitant]
     Indication: ADRENAL INSUFFICIENCY
     Dosage: 10 MG, DAILY
     Dates: start: 20000405, end: 20050314
  5. MOTILIUM [Concomitant]
     Dosage: 20 MG, 2X/DAY
     Route: 048
     Dates: start: 19991013, end: 20030704
  6. MENOPUR [Concomitant]
     Indication: OVARIAN HYPERSTIMULATION SYNDROME
     Dates: start: 200305

REACTIONS (1)
  - Abortion spontaneous [Unknown]
